FAERS Safety Report 9107542 (Version 1)
Quarter: 2013Q1

REPORT INFORMATION
  Report Type: Spontaneous
  Country: CA (occurrence: CA)
  Receive Date: 20130221
  Receipt Date: 20130221
  Transmission Date: 20140127
  Serious: Yes (Other)
  Sender: FDA-Public Use
  Company Number: CA-AMGEN-CANSP2013011613

PATIENT
  Age: 68 Year
  Sex: Female

DRUGS (5)
  1. ENBREL [Suspect]
     Indication: RHEUMATOID ARTHRITIS
     Dosage: UNK UNK, QWK
     Dates: start: 20120906
  2. FENTANYL [Concomitant]
     Dosage: 75 MG, UNK, PATCH
  3. TOPIRAMATE [Concomitant]
     Dosage: 100 MG, UNK
  4. MONOPRIL [Concomitant]
     Dosage: UNK
  5. INSULIN [Concomitant]
     Dosage: UNK

REACTIONS (1)
  - Lumbar spinal stenosis [Not Recovered/Not Resolved]
